FAERS Safety Report 7340605-1 (Version None)
Quarter: 2011Q1

REPORT INFORMATION
  Report Type: 
  Country: None (occurrence: None)
  Receive Date: 20110309
  Receipt Date: 20110201
  Transmission Date: 20110831
  Serious: Yes (Other)
  Sender: FDA-Public Use
  Company Number: NL-SANOFI-AVENTIS-2011SA007246

PATIENT
  Age: 68 Year
  Sex: Male
  Weight: 73 kg

DRUGS (6)
  1. PHENPROCOUMON [Concomitant]
     Route: 048
  2. FRAGMIN [Suspect]
     Indication: THROMBOSIS
     Route: 058
     Dates: start: 20100630
  3. CALCIUM CARBONATE [Concomitant]
     Route: 048
  4. ACTONEL [Concomitant]
     Route: 048
  5. ARAVA [Suspect]
     Indication: RHEUMATOID ARTHRITIS
     Route: 048
     Dates: start: 20100125
  6. AMIODARONE HCL [Concomitant]
     Route: 048

REACTIONS (2)
  - HEPATIC ENZYME ABNORMAL [None]
  - ALANINE AMINOTRANSFERASE INCREASED [None]
